FAERS Safety Report 14993252 (Version 1)
Quarter: 2018Q2

REPORT INFORMATION
  Report Type: Spontaneous
  Country: ES (occurrence: ES)
  Receive Date: 20180610
  Receipt Date: 20180610
  Transmission Date: 20180711
  Serious: Yes (Life-Threatening, Hospitalization, Other)
  Sender: FDA-Public Use
  Company Number: ES-AUROBINDO-AUR-APL-2017-30190

PATIENT
  Age: 42 Year
  Sex: Female

DRUGS (8)
  1. DIPYRONE [Concomitant]
     Active Substance: DIPYRONE
     Indication: ANALGESIC THERAPY
     Dosage: UNK
     Route: 065
  2. ATENOLOL. [Concomitant]
     Active Substance: ATENOLOL
     Indication: HYPERTENSION
     Dosage: 50 MILLIGRAM, DAILY
     Route: 065
  3. MORPHINE [Concomitant]
     Active Substance: MORPHINE
     Indication: SEDATION
     Dosage: UNK
     Route: 041
  4. LEVOFLOXACIN. [Concomitant]
     Active Substance: LEVOFLOXACIN
     Indication: ESCHERICHIA TEST POSITIVE
     Dosage: 500 MG, QD
     Route: 065
  5. DIPOTASSIUM CLORAZEPATE [Concomitant]
     Active Substance: CLORAZEPATE DIPOTASSIUM
     Indication: ANXIETY
     Dosage: 10 MG, Q8H
     Route: 042
  6. LEVOTHYROXINE SODIUM. [Concomitant]
     Active Substance: LEVOTHYROXINE SODIUM
     Indication: HYPOTHYROIDISM
     Route: 065
  7. AMOXICILLIN+CLAVULANIC ACID [Suspect]
     Active Substance: AMOXICILLIN\CLAVULANIC ACID
     Indication: PRODUCT USED FOR UNKNOWN INDICATION
     Dosage: UNK
     Route: 048
  8. ACETAMINOPHEN. [Concomitant]
     Active Substance: ACETAMINOPHEN
     Indication: ANALGESIC THERAPY
     Dosage: UNK
     Route: 065

REACTIONS (10)
  - Anaphylactic shock [Recovering/Resolving]
  - Dyspnoea [Recovering/Resolving]
  - Hypotension [Recovering/Resolving]
  - Impaired gastric emptying [Recovering/Resolving]
  - Sinus tachycardia [Recovering/Resolving]
  - Laryngeal oedema [Recovering/Resolving]
  - Oedema [Recovering/Resolving]
  - Blood glucose increased [Recovering/Resolving]
  - Syncope [Recovering/Resolving]
  - Hyperaemia [Recovering/Resolving]
